FAERS Safety Report 8154867-4 (Version None)
Quarter: 2012Q1

REPORT INFORMATION
  Report Type: 
  Country: None (occurrence: None)
  Receive Date: 20120221
  Receipt Date: 20120215
  Transmission Date: 20120608
  Serious: Yes (Other)
  Sender: FDA-Public Use
  Company Number: PHFR2011IE006469

PATIENT
  Sex: Male

DRUGS (2)
  1. CLOZARIL [Suspect]
     Indication: SCHIZOPHRENIA, PARANOID TYPE
     Dosage: 350 MG, 150 MG MORNING AND 200 MG NIGHT
     Route: 048
     Dates: start: 20090210
  2. CLOZARIL [Suspect]
     Dosage: 100 MG

REACTIONS (5)
  - CHRONIC LYMPHOCYTIC LEUKAEMIA [None]
  - DYSLIPIDAEMIA [None]
  - LYMPHOCYTE COUNT INCREASED [None]
  - PLATELET DISORDER [None]
  - HYPERTENSION [None]
